FAERS Safety Report 4626462-2 (Version None)
Quarter: 2005Q1

REPORT INFORMATION
  Report Type: 
  Country: None (occurrence: None)
  Receive Date: 20050330
  Receipt Date: 20050310
  Transmission Date: 20050727
  Serious: Yes (Hospitalization, Other)
  Sender: FDA-Public Use
  Company Number: USA041287197

PATIENT
  Age: 75 Year
  Sex: Female
  Weight: 39 kg

DRUGS (4)
  1. FORTEO [Suspect]
     Indication: OSTEOPOROSIS
     Dates: start: 20040301
  2. CALCIUM AND VITAMIN D [Concomitant]
  3. LISINOPRIL [Concomitant]
  4. METHADONE HCL [Concomitant]

REACTIONS (20)
  - BLOOD CALCIUM INCREASED [None]
  - COMMINUTED FRACTURE [None]
  - DISLOCATION OF VERTEBRA [None]
  - DRUG INEFFECTIVE [None]
  - ECCHYMOSIS [None]
  - EXCORIATION [None]
  - EYE SWELLING [None]
  - EYELID MARGIN CRUSTING [None]
  - FACIAL BONES FRACTURE [None]
  - FALL [None]
  - HEADACHE [None]
  - HUMERUS FRACTURE [None]
  - JOINT INJURY [None]
  - PAIN [None]
  - PHARMACEUTICAL PRODUCT COMPLAINT [None]
  - PROCEDURAL COMPLICATION [None]
  - SKIN LACERATION [None]
  - ULNA FRACTURE [None]
  - UPPER LIMB FRACTURE [None]
  - VITAMIN D DEFICIENCY [None]
